FAERS Safety Report 10143814 (Version 1)
Quarter: 2014Q2

REPORT INFORMATION
  Report Type: Spontaneous
  Country: GB (occurrence: GB)
  Receive Date: 20140430
  Receipt Date: 20140430
  Transmission Date: 20141212
  Serious: Yes (Hospitalization)
  Sender: FDA-Public Use
  Company Number: GB-GLAXOSMITHKLINE-B0988364A

PATIENT
  Age: 30 Year
  Sex: Female
  Weight: 62 kg

DRUGS (2)
  1. ONDANSETRON [Suspect]
     Indication: VOMITING
     Route: 042
  2. PROPOFOL [Concomitant]
     Indication: ANAESTHESIA

REACTIONS (1)
  - Visual impairment [Recovered/Resolved]
